FAERS Safety Report 14984371 (Version 1)
Quarter: 2018Q2

REPORT INFORMATION
  Report Type: Report from Study
  Country: FR (occurrence: FR)
  Receive Date: 20180607
  Receipt Date: 20180607
  Transmission Date: 20180711
  Serious: Yes (Death)
  Sender: FDA-Public Use
  Company Number: FR-JAZZ-2017-FR-016839

PATIENT

DRUGS (4)
  1. DEFITELIO [Suspect]
     Active Substance: DEFIBROTIDE SODIUM
     Indication: VENOOCCLUSIVE DISEASE
     Dosage: 26 MG/KG, QD
     Dates: start: 20150327, end: 20150331
  2. TAVANIC [Concomitant]
     Active Substance: LEVOFLOXACIN
     Indication: PLEURISY
  3. ACICLOVIR [Concomitant]
     Active Substance: ACYCLOVIR
     Indication: ENCEPHALITIS
     Dosage: 2550 MG, QD
     Route: 042
     Dates: start: 20150316, end: 20150331
  4. TAVANIC [Concomitant]
     Active Substance: LEVOFLOXACIN
     Indication: PNEUMONIA
     Dosage: 500 MG, QD
     Route: 042
     Dates: start: 20150314, end: 20150331

REACTIONS (2)
  - Nephropathy toxic [Fatal]
  - Venoocclusive disease [Fatal]

NARRATIVE: CASE EVENT DATE: 201503
